FAERS Safety Report 5631999-3 (Version None)
Quarter: 2008Q1

REPORT INFORMATION
  Report Type: 
  Country: None (occurrence: None)
  Receive Date: 20080213
  Receipt Date: 20080128
  Transmission Date: 20080703
  Serious: Yes (Hospitalization)
  Sender: FDA-Public Use
  Company Number: DSA_30953_2007

PATIENT
  Sex: Female

DRUGS (3)
  1. LORAZEPAM [Suspect]
     Indication: EPILEPSY
     Dosage: DF
     Dates: start: 20071101, end: 20071101
  2. BARBITAL  (BARBITAL) [Suspect]
     Indication: DRUG USE FOR UNKNOWN INDICATION
     Dosage: (NOT THE PRESCRIBED DOSE, ORAL)
     Route: 048
  3. VALPROIC ACID [Concomitant]

REACTIONS (7)
  - APATHY [None]
  - BARBITURATES POSITIVE [None]
  - CONFUSIONAL STATE [None]
  - INTENTIONAL OVERDOSE [None]
  - NAUSEA [None]
  - SUICIDE ATTEMPT [None]
  - VOMITING [None]
